FAERS Safety Report 22370256 (Version 1)
Quarter: 2023Q2

REPORT INFORMATION
  Report Type: Spontaneous
  Country: ZA (occurrence: ZA)
  Receive Date: 20230526
  Receipt Date: 20230526
  Transmission Date: 20230722
  Serious: Yes (Death, Other)
  Sender: FDA-Public Use
  Company Number: ZA-CIPLA LTD.-2022ZA05851

PATIENT

DRUGS (8)
  1. WARFARIN [Suspect]
     Active Substance: WARFARIN
     Indication: Deep vein thrombosis
     Dosage: 5 MILLIGRAM, QD (IN THE MORNING)
     Route: 065
     Dates: start: 20220913
  2. TRAMADOL HYDROCHLORIDE [Concomitant]
     Active Substance: TRAMADOL HYDROCHLORIDE
     Indication: Pain
     Dosage: UNK
     Route: 065
     Dates: start: 20220913
  3. PAINOGESIC [Concomitant]
     Indication: Pain
     Dosage: 1000 MILLIGRAM, TID
     Route: 065
     Dates: start: 20220913
  4. PYRIDOXINE [Concomitant]
     Active Substance: PYRIDOXINE
     Indication: Product used for unknown indication
     Dosage: 25 MILLIGRAM, QD
     Route: 065
     Dates: start: 20220913
  5. PREDNISONE [Concomitant]
     Active Substance: PREDNISONE
     Indication: Swelling
     Dosage: UNK
     Route: 065
     Dates: start: 20220916
  6. IBUPROFEN [Concomitant]
     Active Substance: IBUPROFEN
     Indication: Product used for unknown indication
     Dosage: UNK, BID (200X2)
     Route: 065
     Dates: start: 202209
  7. ATENOLOL [Concomitant]
     Active Substance: ATENOLOL
     Indication: Product used for unknown indication
     Dosage: UNK
     Route: 065
     Dates: start: 202209
  8. ENALAPRIL [Concomitant]
     Active Substance: ENALAPRIL
     Indication: Product used for unknown indication
     Dosage: UNK
     Route: 065
     Dates: start: 202209

REACTIONS (9)
  - Death [Fatal]
  - Haemorrhage [Unknown]
  - Hypertension [Recovered/Resolved]
  - Pain [Unknown]
  - Swelling [Unknown]
  - Contusion [Unknown]
  - Headache [Unknown]
  - Presyncope [Unknown]
  - Discomfort [Unknown]

NARRATIVE: CASE EVENT DATE: 20220901
